FAERS Safety Report 9660185 (Version 2)
Quarter: 2013Q4

REPORT INFORMATION
  Report Type: Spontaneous
  Country: US (occurrence: US)
  Receive Date: 20131031
  Receipt Date: 20131031
  Transmission Date: 20140711
  Serious: Yes (Hospitalization)
  Sender: FDA-Public Use
  Company Number: US-PFIZER INC-2013262195

PATIENT
  Age: 58 Year
  Sex: Male
  Weight: 101 kg

DRUGS (5)
  1. PROTONIX [Suspect]
     Indication: GASTROOESOPHAGEAL REFLUX DISEASE
     Dosage: 40 MG, DAILY
  2. PROTONIX [Suspect]
     Indication: HIATUS HERNIA
  3. LISINOPRIL [Concomitant]
     Indication: HYPERTENSION
     Dosage: 5 MG, DAILY
  4. COUMADINE [Concomitant]
     Indication: THROMBOSIS
     Dosage: 10MG DAILY FOR 5 DAYS A WEEK AND 5MG DAILY FOR 2 DAYS A WEEK
  5. ENOXAPARIN SODIUM [Concomitant]
     Indication: BACK DISORDER
     Dosage: UNK, 80MG/0.8ML
     Dates: start: 201310

REACTIONS (2)
  - Thrombosis [Recovered/Resolved]
  - Cardiac failure congestive [Unknown]
